FAERS Safety Report 9975130 (Version 1)
Quarter: 2014Q1

REPORT INFORMATION
  Report Type: Spontaneous
  Country: US (occurrence: US)
  Receive Date: 20140306
  Receipt Date: 20140306
  Transmission Date: 20141002
  Serious: No
  Sender: FDA-Public Use
  Company Number: US-009507513-1403USA002058

PATIENT
  Sex: Female

DRUGS (9)
  1. REBETOL [Suspect]
     Indication: HEPATITIS C
     Dosage: 1 AM AND PM
     Route: 048
     Dates: start: 20140218
  2. PEGASYS [Suspect]
     Indication: HEPATITIS C
     Dosage: 180 MICROGRAM, QW
     Route: 058
     Dates: start: 20140218
  3. SOVALDI [Concomitant]
     Dosage: 1 DF, QD
  4. SYNTHROID [Concomitant]
     Dosage: 1 DF, QD
  5. SERTRALINE HYDROCHLORIDE [Concomitant]
     Dosage: 1 DF, QD
  6. TEMAZEPAM [Concomitant]
     Dosage: 1 DF, QD
  7. TRAVATAN [Concomitant]
     Dosage: 2 DF, HS
     Route: 047
  8. NORTRIPTYLINE [Concomitant]
     Dosage: 1 DF, QD
  9. PREMARIN [Concomitant]
     Dosage: 2 DF, QW

REACTIONS (2)
  - Headache [Unknown]
  - Nausea [Unknown]
